FAERS Safety Report 21514348 (Version 2)
Quarter: 2022Q4

REPORT INFORMATION
  Report Type: Spontaneous
  Country: US (occurrence: US)
  Receive Date: 20221027
  Receipt Date: 20221109
  Transmission Date: 20230113
  Serious: Yes (Life-Threatening, Hospitalization)
  Sender: FDA-Public Use
  Company Number: US-TEVA-2022-US-2818709

PATIENT
  Age: 19 Year
  Sex: Male

DRUGS (16)
  1. EPINEPHRINE [Suspect]
     Active Substance: EPINEPHRINE
     Indication: Portopulmonary hypertension
     Dosage: LOW-DOSE EPINEPHRINE
     Route: 065
  2. LIDOCAINE [Suspect]
     Active Substance: LIDOCAINE
     Indication: Ventricular tachyarrhythmia
     Route: 065
  3. EPOPROSTENOL [Suspect]
     Active Substance: EPOPROSTENOL
     Indication: Portopulmonary hypertension
     Route: 042
  4. EPOPROSTENOL [Suspect]
     Active Substance: EPOPROSTENOL
     Indication: Portopulmonary hypertension
     Dosage: 6NG/KG/MIN
     Route: 042
  5. MAGNESIUM SULFATE [Suspect]
     Active Substance: MAGNESIUM SULFATE
     Indication: Ventricular tachyarrhythmia
     Route: 065
  6. MILRINONE [Suspect]
     Active Substance: MILRINONE
     Indication: Portopulmonary hypertension
     Route: 065
  7. SILDENAFIL [Suspect]
     Active Substance: SILDENAFIL
     Indication: Portopulmonary hypertension
     Route: 042
  8. SILDENAFIL [Suspect]
     Active Substance: SILDENAFIL
     Indication: Portopulmonary hypertension
     Route: 042
  9. SILDENAFIL [Suspect]
     Active Substance: SILDENAFIL
     Indication: Portopulmonary hypertension
     Route: 050
  10. MACITENTAN [Suspect]
     Active Substance: MACITENTAN
     Indication: Portopulmonary hypertension
     Dosage: 5 MILLIGRAM DAILY;
     Route: 050
  11. VITAMIN C [Suspect]
     Active Substance: ASCORBIC ACID
     Indication: Vitamin C deficiency
     Dosage: HIGH DOSE
     Route: 051
  12. VITAMIN C [Suspect]
     Active Substance: ASCORBIC ACID
     Dosage: HIGH DOSE
     Route: 050
  13. SODIUM BICARBONATE [Concomitant]
     Active Substance: SODIUM BICARBONATE
     Indication: Product used for unknown indication
     Route: 065
  14. BASILIXIMAB [Concomitant]
     Active Substance: BASILIXIMAB
     Indication: Immunosuppressant drug therapy
     Dosage: ON DAY 0 AND DAY 4, 20 MG
     Route: 065
  15. METHYLPREDNISOLONE [Concomitant]
     Active Substance: METHYLPREDNISOLONE
     Indication: Immunosuppressant drug therapy
     Dosage: ON DAY 0 , TAPERED OFF OVER 4 WEEKS, 500 MG
     Route: 065
  16. TACROLIMUS [Concomitant]
     Active Substance: TACROLIMUS
     Indication: Immunosuppressant drug therapy
     Dosage: ON DAY 0, 0.5 MG
     Route: 065

REACTIONS (1)
  - Drug ineffective [Unknown]
